FAERS Safety Report 5307893-4 (Version None)
Quarter: 2007Q2

REPORT INFORMATION
  Report Type: 
  Country: None (occurrence: None)
  Receive Date: 20070420
  Receipt Date: 20070411
  Transmission Date: 20071010
  Serious: Yes (Hospitalization, Other)
  Sender: FDA-Public Use
  Company Number: 163-21880-07040577

PATIENT
  Age: 64 Year
  Sex: Female
  Weight: 75.6 kg

DRUGS (2)
  1. REVLIMID [Suspect]
     Indication: MULTIPLE MYELOMA
     Dosage: 25 MG, QD, DAYS 1-21, EVERY 28 DAYS, ORAL
     Route: 048
     Dates: start: 20050722, end: 20050802
  2. DEXAMETHASONE TAB [Suspect]
     Indication: MULTIPLE MYELOMA
     Dosage: 40 MG, QD, DAYS 1, 8, 15, AND 22 EVERY 28 DAYS, ORAL
     Route: 048
     Dates: start: 20050722, end: 20050802

REACTIONS (6)
  - DEHYDRATION [None]
  - HAEMODIALYSIS [None]
  - NAUSEA [None]
  - ORAL INTAKE REDUCED [None]
  - RENAL FAILURE [None]
  - TUMOUR LYSIS SYNDROME [None]
